FAERS Safety Report 17752919 (Version 1)
Quarter: 2020Q2

REPORT INFORMATION
  Report Type: Spontaneous
  Country: US (occurrence: US)
  Receive Date: 20200506
  Receipt Date: 20200506
  Transmission Date: 20200714
  Serious: No
  Sender: FDA-Public Use
  Company Number: US-ROCHE-2382263

PATIENT
  Sex: Male

DRUGS (8)
  1. WARFARIN SODIUM. [Concomitant]
     Active Substance: WARFARIN SODIUM
     Route: 065
  2. TYLENOL [Concomitant]
     Active Substance: ACETAMINOPHEN
     Route: 065
  3. LOVASTATIN. [Concomitant]
     Active Substance: LOVASTATIN
     Route: 065
  4. SOTALOL HCL [Concomitant]
     Active Substance: SOTALOL
     Route: 065
  5. ESBRIET [Suspect]
     Active Substance: PIRFENIDONE
     Indication: IDIOPATHIC PULMONARY FIBROSIS
     Dosage: ONGOING: NO
     Route: 048
     Dates: start: 20190708
  6. NITROGLYCERIN. [Concomitant]
     Active Substance: NITROGLYCERIN
     Route: 065
  7. POLYETHYLENE GLYCOL ELECTROLYTES POWDER (2) [Concomitant]
  8. PREDNISONE. [Concomitant]
     Active Substance: PREDNISONE
     Dosage: POWDER
     Route: 065

REACTIONS (1)
  - Gastric disorder [Not Recovered/Not Resolved]
